FAERS Safety Report 4509629-3 (Version None)
Quarter: 2004Q4

REPORT INFORMATION
  Report Type: 
  Country: None (occurrence: None)
  Receive Date: 20041124
  Receipt Date: 20041122
  Transmission Date: 20050328
  Serious: Yes (Hospitalization)
  Sender: FDA-Public Use
  Company Number: 200412655DE

PATIENT
  Age: 60 Year
  Sex: Female
  Weight: 60 kg

DRUGS (1)
  1. TAXOTERE [Suspect]
     Indication: BREAST CANCER
     Route: 041
     Dates: start: 20040521, end: 20040521

REACTIONS (4)
  - AGEUSIA [None]
  - BONE PAIN [None]
  - SACRAL PAIN [None]
  - SENSATION OF PRESSURE [None]
